FAERS Safety Report 9098146 (Version 2)
Quarter: 2013Q2

REPORT INFORMATION
  Report Type: Spontaneous
  Country: GB (occurrence: US)
  Receive Date: 20130213
  Receipt Date: 20130404
  Transmission Date: 20140414
  Serious: Yes (Death, Hospitalization)
  Sender: FDA-Public Use
  Company Number: US-PFIZER INC-2013053278

PATIENT
  Age: 73 Year
  Sex: Female

DRUGS (8)
  1. CHLORAMPHENICOL [Suspect]
     Indication: CATARACT OPERATION
     Dosage: 0.5 %, 3 - 4 TIMES DAILY
     Route: 031
     Dates: start: 1979
  2. CHLORAMPHENICOL [Suspect]
     Dosage: 1%, IN RIGHT EYE
  3. CHLORAMPHENICOL/HYDROCORTISONE ACETATE/POLYMYXIN B SULFATE [Suspect]
     Indication: CATARACT OPERATION
     Dosage: NIGHTLY
     Route: 031
     Dates: start: 1979
  4. DYAZIDE [Concomitant]
     Dosage: UNK
  5. TRIAMTERENE [Concomitant]
     Dosage: UNK
  6. EMPIRIN COMPOUND [Concomitant]
     Dosage: UNK
  7. ROBITUSSIN DM-P [Concomitant]
  8. CARBACHOL [Concomitant]

REACTIONS (6)
  - Aplastic anaemia [Fatal]
  - Toxicity to various agents [None]
  - Pancytopenia [None]
  - Confusional state [None]
  - Petechiae [None]
  - Contusion [None]
